FAERS Safety Report 7207220-1 (Version None)
Quarter: 2010Q4

REPORT INFORMATION
  Report Type: 
  Country: None (occurrence: None)
  Receive Date: 20101230
  Receipt Date: 20101230
  Transmission Date: 20110411
  Serious: Yes (Hospitalization)
  Sender: FDA-Public Use
  Company Number: None

PATIENT
  Sex: Female
  Weight: 72.5755 kg

DRUGS (1)
  1. RECLAST [Suspect]
     Indication: OSTEOPOROSIS
     Dosage: 15 MINUTE INTRAVENOUS DRIP 15 MINUTES IV DRIP
     Route: 041
     Dates: start: 20101208, end: 20101208

REACTIONS (9)
  - DISORIENTATION [None]
  - DIZZINESS [None]
  - EAR CONGESTION [None]
  - HEADACHE [None]
  - JOINT SWELLING [None]
  - MIDDLE EAR DISORDER [None]
  - NECK PAIN [None]
  - PYREXIA [None]
  - SPEECH DISORDER [None]
